FAERS Safety Report 5055185-3 (Version None)
Quarter: 2006Q3

REPORT INFORMATION
  Report Type: 
  Country: None (occurrence: None)
  Receive Date: 20060719
  Receipt Date: 20060620
  Transmission Date: 20061208
  Serious: Yes (Hospitalization)
  Sender: FDA-Public Use
  Company Number: FRWYE797126JUN06

PATIENT
  Sex: Male

DRUGS (8)
  1. ENBREL [Suspect]
     Indication: ANKYLOSING SPONDYLITIS
     Route: 058
     Dates: start: 20050819
  2. IKOREL [Concomitant]
     Dosage: 20 MG; FREQUENCY UNSPEC.
     Route: 048
  3. OMEPRAZOLE [Concomitant]
     Dosage: 20 MG; FREQUENCY UNSPEC.
     Route: 048
  4. LEXOMIL [Concomitant]
     Dosage: 6 MG; FREQUENCY UNSPEC.
     Route: 048
  5. ASPIRIN [Concomitant]
     Dosage: 75 MG; FREQUENCY UNSPEC.
     Route: 048
  6. VASTAREL [Concomitant]
     Dosage: UNKNOWN
     Route: 048
  7. BISOPROLOL FUMARATE [Concomitant]
     Dosage: 10 MG; FREQUENCY UNSPEC.
     Route: 048
  8. OMIX [Concomitant]
     Dosage: 0.4 MG; FREQUENCY UNSPEC.
     Route: 048

REACTIONS (2)
  - ERECTILE DYSFUNCTION [None]
  - MYOCARDIAL INFARCTION [None]
